FAERS Safety Report 4644726-3 (Version None)
Quarter: 2005Q2

REPORT INFORMATION
  Report Type: 
  Country: None (occurrence: None)
  Receive Date: 20050422
  Receipt Date: 20050413
  Transmission Date: 20051028
  Serious: Yes (Other)
  Sender: FDA-Public Use
  Company Number: 2005-01076

PATIENT
  Age: 49 Year
  Sex: Female
  Weight: 56.7 kg

DRUGS (4)
  1. HYDROXYCHLOROQUINE SULFATE [Suspect]
     Dosage: 600 MG, DAILY, ORAL
     Route: 048
     Dates: start: 20000101
  2. COUMADIN [Concomitant]
  3. PREMPHASE 14/14 [Concomitant]
  4. PROTONIX    WYETH-AYERST    (PANTOPRAZOLE SODIUM) [Concomitant]

REACTIONS (2)
  - CARDIAC FAILURE [None]
  - CARDIOMYOPATHY [None]
